FAERS Safety Report 8977512 (Version 1)
Quarter: 2012Q4

REPORT INFORMATION
  Report Type: 
  Country: US (occurrence: US)
  Receive Date: 20121220
  Receipt Date: 20121220
  Transmission Date: 20130627
  Serious: No
  Sender: FDA-Public Use
  Company Number: US-PFIZER INC-2012318555

PATIENT
  Age: 38 Year
  Sex: Female
  Weight: 54.42 kg

DRUGS (14)
  1. DIFLUCAN [Suspect]
     Indication: INFECTION
     Dosage: UNK, as needed
  2. GABAPENTIN [Suspect]
     Indication: FIBROMYALGIA
     Dosage: 100 mg, 3x/day
  3. PREDNISOLONE [Suspect]
     Indication: WBC INCREASED
     Dosage: UNK
  4. XANAX [Suspect]
     Indication: ANXIETY
     Dosage: 0.5 mg, 3x/day
     Dates: start: 2004
  5. XANAX [Suspect]
     Indication: PANIC ATTACKS
  6. AZITHROMYCIN [Suspect]
     Dosage: UNK
  7. LAMICTAL [Concomitant]
     Dosage: UNK
  8. SEROQUEL [Concomitant]
     Dosage: UNK
  9. DEMEROL [Concomitant]
     Dosage: UNK
  10. NEXIUM [Concomitant]
     Dosage: UNK
  11. FOLIC ACID [Concomitant]
     Dosage: UNK
  12. FLONASE [Concomitant]
     Dosage: UNK
  13. CYCLOBENZAPRINE [Concomitant]
     Dosage: UNK
  14. SYMBICORT [Concomitant]
     Dosage: UNK

REACTIONS (2)
  - Weight increased [Unknown]
  - Drug hypersensitivity [Unknown]
